FAERS Safety Report 19985482 (Version 2)
Quarter: 2021Q4

REPORT INFORMATION
  Report Type: Report from Study
  Country: US (occurrence: US)
  Receive Date: 20211021
  Receipt Date: 20211112
  Transmission Date: 20220303
  Serious: Yes (Hospitalization)
  Sender: FDA-Public Use
  Company Number: US-SEATTLE GENETICS-2021SGN05373

PATIENT
  Age: 80 Year
  Sex: Male
  Weight: 88 kg

DRUGS (22)
  1. TUCATINIB [Suspect]
     Active Substance: TUCATINIB
     Indication: Oesophageal adenocarcinoma
     Dosage: 300 MG, BID
     Route: 048
     Dates: start: 20211011
  2. TRASTUZUMAB [Suspect]
     Active Substance: TRASTUZUMAB
     Indication: Oesophageal adenocarcinoma
     Dosage: 6 MG/KG, SINGLE
     Route: 042
     Dates: start: 20211004
  3. TRASTUZUMAB [Suspect]
     Active Substance: TRASTUZUMAB
     Dosage: 4 MG ON DAY 1 OF EVERY 2-WEEK CYCLE (STARTING FROM CYCLE 2 DAY 1 ONWARDS
     Route: 042
     Dates: end: 20211018
  4. OXALIPLATIN [Suspect]
     Active Substance: OXALIPLATIN
     Indication: Oesophageal adenocarcinoma
     Dosage: 85 MG/M2 ON CYCLE 1 DAY 1 OF EVERY 2-WEEK CYCLE
     Route: 042
     Dates: start: 20211004
  5. FLUOROURACIL [Suspect]
     Active Substance: FLUOROURACIL
     Indication: Oesophageal adenocarcinoma
     Dosage: 2400 MG/M2 ON CYCLE 1 DAY 1 OF EVERY 2-WEEK CYCLE
     Route: 042
     Dates: start: 20211004
  6. LEUCOVORIN [Suspect]
     Active Substance: LEUCOVORIN
     Indication: Oesophageal adenocarcinoma
     Dosage: 200 MG/M2 ON CYCLE 1 DAY 1 OF EVERY 2-WEEK CYCLE
     Route: 042
     Dates: start: 20211004
  7. OMEPRAZOLE [Concomitant]
     Active Substance: OMEPRAZOLE
     Dosage: 40 MG, BID
     Route: 048
     Dates: start: 20210824
  8. DEXAMETHASONE [Concomitant]
     Active Substance: DEXAMETHASONE
     Dosage: 50 MG
     Route: 048
     Dates: start: 20211001
  9. ENOXAPARIN [Concomitant]
     Active Substance: ENOXAPARIN
     Dosage: UNK
     Route: 058
     Dates: start: 2021
  10. ZOFRAN [Concomitant]
     Active Substance: ONDANSETRON HYDROCHLORIDE
     Indication: Nausea
     Dosage: AS NECESSARY
     Route: 048
     Dates: start: 2021
  11. COMPAZINE [Concomitant]
     Active Substance: PROCHLORPERAZINE MALEATE
     Dosage: 10 MG AS NEEDEED
     Route: 048
  12. EMLA [Concomitant]
     Active Substance: LIDOCAINE\PRILOCAINE
     Dosage: AS NECESSARY
     Route: 061
  13. LIPITOR [Concomitant]
     Active Substance: ATORVASTATIN CALCIUM
     Dosage: 20 MG, QD
     Route: 048
     Dates: start: 20200216
  14. COREG [Concomitant]
     Active Substance: CARVEDILOL
     Dosage: 3.125 MG, BID
     Route: 048
     Dates: start: 20210420
  15. HYTRIN [Concomitant]
     Active Substance: TERAZOSIN HYDROCHLORIDE
     Dosage: 10 MG, QD
     Route: 048
  16. AMBIEN [Concomitant]
     Active Substance: ZOLPIDEM TARTRATE
     Dosage: 5 MG AS NECESSARY
     Route: 048
  17. XALATAN [Concomitant]
     Active Substance: LATANOPROST
     Dosage: 0.005 %
     Route: 047
  18. TIMOPTIC [Concomitant]
     Active Substance: TIMOLOL MALEATE
     Dosage: 0.5 %
     Route: 047
  19. PREDNISONE [Concomitant]
     Active Substance: PREDNISONE
     Dosage: 60 MG, QD
     Dates: start: 20211009, end: 20211016
  20. ENOXAPARIN [Concomitant]
     Active Substance: ENOXAPARIN
     Dosage: 100 MG, QD
     Dates: start: 20210928
  21. BENADRYL [Concomitant]
     Active Substance: DIPHENHYDRAMINE HYDROCHLORIDE
     Indication: Hypersensitivity
     Dosage: AS NECESSARY
     Dates: start: 20210921
  22. BETIMOL [TIMOLOL] [Concomitant]
     Indication: Glaucoma
     Route: 047

REACTIONS (1)
  - Diarrhoea [Recovered/Resolved]

NARRATIVE: CASE EVENT DATE: 20211019
